FAERS Safety Report 8972030 (Version 1)
Quarter: 2012Q4

REPORT INFORMATION
  Report Type: Report from Study
  Country: HU (occurrence: HU)
  Receive Date: 20121219
  Receipt Date: 20121219
  Transmission Date: 20130627
  Serious: Yes (Hospitalization)
  Sender: FDA-Public Use
  Company Number: HU-NAPPMUNDI-DEU-2012-0009990

PATIENT
  Age: 69 Year
  Sex: Male
  Weight: 63.7 kg

DRUGS (9)
  1. OXYCONTIN [Suspect]
     Indication: PRODUCT USED FOR UNKNOWN INDICATION
     Route: 048
  2. CAPECITABINE [Suspect]
     Indication: OESOPHAGEAL CARCINOMA
     Dosage: 850 mg/m2, UNK
     Route: 048
     Dates: start: 20100312
  3. BEVACIZUMAB [Suspect]
     Indication: PRODUCT USED FOR UNKNOWN INDICATION
  4. OXALIPLATIN [Suspect]
     Indication: OESOPHAGEAL CARCINOMA
     Dosage: UNK, 3/week
     Route: 042
     Dates: start: 20100312
  5. MACROGOL [Suspect]
     Indication: PRODUCT USED FOR UNKNOWN INDICATION
  6. MAGNESIUM SULPHATE [Suspect]
     Indication: PRODUCT USED FOR UNKNOWN INDICATION
  7. SENOKOT                            /00142201/ [Suspect]
     Indication: PRODUCT USED FOR UNKNOWN INDICATION
  8. DOCUSATE SODIUM [Concomitant]
     Indication: PRODUCT USED FOR UNKNOWN INDICATION
  9. MIRALAX [Suspect]
     Indication: PRODUCT USED FOR UNKNOWN INDICATION

REACTIONS (3)
  - Intestinal obstruction [Unknown]
  - Constipation [Unknown]
  - Vomiting [Unknown]
